FAERS Safety Report 5225901-6 (Version None)
Quarter: 2007Q1

REPORT INFORMATION
  Report Type: 
  Country: None (occurrence: None)
  Receive Date: 20070129
  Receipt Date: 20070116
  Transmission Date: 20070707
  Serious: Yes (Other)
  Sender: FDA-Public Use
  Company Number: GXKR2007GB00848

PATIENT
  Age: 24 Year
  Sex: Female
  Weight: 63 kg

DRUGS (2)
  1. DOXYCYCLINE HCL [Suspect]
  2. MICROGYNON (ETHINYLESTRADIOL, LEVONORGESTREL) [Concomitant]

REACTIONS (4)
  - DYSPEPSIA [None]
  - DYSPHAGIA [None]
  - EATING DISORDER [None]
  - ORAL INTAKE REDUCED [None]
